FAERS Safety Report 11754906 (Version 1)
Quarter: 2015Q4

REPORT INFORMATION
  Report Type: Spontaneous
  Country: US (occurrence: US)
  Receive Date: 20151119
  Receipt Date: 20151119
  Transmission Date: 20160304
  Serious: Yes (Hospitalization)
  Sender: FDA-Public Use
  Company Number: US-DSJP-DSU-2015-118400

PATIENT

DRUGS (4)
  1. BENICAR [Suspect]
     Active Substance: OLMESARTAN MEDOXOMIL
     Indication: PRODUCT USED FOR UNKNOWN INDICATION
     Dosage: 20 MG, UNK
     Route: 048
     Dates: start: 200207, end: 200304
  2. BENICAR [Suspect]
     Active Substance: OLMESARTAN MEDOXOMIL
     Dosage: 40 MG, UNK
     Dates: start: 200305, end: 200609
  3. BENICAR HCT [Suspect]
     Active Substance: HYDROCHLOROTHIAZIDE\OLMESARTAN MEDOXOMIL
     Dosage: 40/12.5 MG, UNK
     Dates: start: 200610, end: 201105
  4. BENICAR HCT [Suspect]
     Active Substance: HYDROCHLOROTHIAZIDE\OLMESARTAN MEDOXOMIL
     Indication: PRODUCT USED FOR UNKNOWN INDICATION
     Dosage: 40/12.5 MG, QD
     Route: 048
     Dates: start: 2003

REACTIONS (14)
  - Hypoproteinaemia [Unknown]
  - Metabolic acidosis [Unknown]
  - Bile duct stone [Unknown]
  - Hepatic cyst [Unknown]
  - Duodenitis [Unknown]
  - Malabsorption [Recovered/Resolved]
  - Renal cyst [Unknown]
  - Oedema peripheral [Unknown]
  - Coeliac disease [Unknown]
  - Gastrointestinal injury [Unknown]
  - Diverticulum [Unknown]
  - Cholelithiasis [Unknown]
  - Duodenal polyp [Unknown]
  - Gastritis [Unknown]

NARRATIVE: CASE EVENT DATE: 2013
